FAERS Safety Report 5884587-8 (Version None)
Quarter: 2008Q3

REPORT INFORMATION
  Report Type: 
  Country: None (occurrence: None)
  Receive Date: 20080916
  Receipt Date: 20080905
  Transmission Date: 20090109
  Serious: Yes (Death, Life-Threatening, Hospitalization)
  Sender: FDA-Public Use
  Company Number: AU-JNJFOC-20080901676

PATIENT
  Sex: Male

DRUGS (2)
  1. REMICADE [Suspect]
     Dosage: 3 INFUSIONS
     Route: 042
  2. REMICADE [Suspect]
     Indication: PSORIASIS
     Dosage: 5 INFUSIONS
     Route: 042

REACTIONS (4)
  - CHILLS [None]
  - DEATH [None]
  - INFUSION RELATED REACTION [None]
  - WHITE BLOOD CELL COUNT INCREASED [None]
